FAERS Safety Report 7171173-5 (Version None)
Quarter: 2010Q4

REPORT INFORMATION
  Report Type: 
  Country: None (occurrence: None)
  Receive Date: 20101123
  Receipt Date: 20100929
  Transmission Date: 20110411
  Serious: No
  Sender: FDA-Public Use
  Company Number: 019594

PATIENT
  Sex: Male
  Weight: 72.6 kg

DRUGS (4)
  1. CIMZIA [Suspect]
     Indication: CROHN'S DISEASE
     Dosage: 400 MG 1X/MONTH, SUBCUTANEOUS
     Route: 058
     Dates: start: 20100501
  2. PERCOCET [Concomitant]
  3. VICODIN [Concomitant]
  4. IMITREX [Concomitant]

REACTIONS (4)
  - ABDOMINAL PAIN [None]
  - DRUG EFFECT DECREASED [None]
  - INFECTION [None]
  - INJECTION SITE REACTION [None]
